FAERS Safety Report 17057051 (Version 1)
Quarter: 2019Q4

REPORT INFORMATION
  Report Type: Spontaneous
  Country: US (occurrence: US)
  Receive Date: 20191121
  Receipt Date: 20191121
  Transmission Date: 20200122
  Serious: No
  Sender: FDA-Public Use
  Company Number: US-TEVA-2019-US-1138965

PATIENT
  Age: 65 Year
  Sex: Male

DRUGS (1)
  1. OXALIPLATIN INJECTION [Suspect]
     Active Substance: OXALIPLATIN
     Indication: HEPATOCELLULAR CARCINOMA
     Dosage: DOSE STRENGTH: 5 MG/ML, 50 MG
     Route: 065
     Dates: start: 20191113

REACTIONS (1)
  - Injection site extravasation [Unknown]

NARRATIVE: CASE EVENT DATE: 20191113
